FAERS Safety Report 18683472 (Version 1)
Quarter: 2020Q4

REPORT INFORMATION
  Report Type: Spontaneous
  Country: US (occurrence: US)
  Receive Date: 20201230
  Receipt Date: 20201230
  Transmission Date: 20210114
  Serious: Yes (Other)
  Sender: FDA-Public Use
  Company Number: US-MYLANLABS-2020M1105083

PATIENT
  Age: 76 Year
  Sex: Female

DRUGS (1)
  1. METHOTREXATE. [Suspect]
     Active Substance: METHOTREXATE
     Indication: ARTHRITIS
     Dosage: 10 MILLIGRAM, QD, PATIENT REPORTED TAKING 10 MG DAILY INSTEAD OF WEEKLY
     Route: 065

REACTIONS (9)
  - Incorrect dose administered [Recovering/Resolving]
  - Oral mucosa erosion [Recovered/Resolved]
  - Pancytopenia [Recovered/Resolved]
  - Acute kidney injury [Unknown]
  - Hypoalbuminaemia [Unknown]
  - Toxicity to various agents [Recovering/Resolving]
  - Dysphagia [Unknown]
  - Mouth haemorrhage [Recovered/Resolved]
  - Skin ulcer [Recovering/Resolving]
